FAERS Safety Report 11878247 (Version 1)
Quarter: 2015Q4

REPORT INFORMATION
  Report Type: Other
  Country: HK (occurrence: HK)
  Receive Date: 20151230
  Receipt Date: 20151230
  Transmission Date: 20160305
  Serious: Yes (Hospitalization)
  Sender: FDA-Public Use
  Company Number: HK-LUPIN PHARMACEUTICALS INC.-2015-04433

PATIENT
  Age: 18 Month
  Sex: Male
  Weight: 11.9 kg

DRUGS (1)
  1. IMIPRAMINE 25 MG TABLET [Suspect]
     Active Substance: IMIPRAMINE
     Indication: PRODUCT USED FOR UNKNOWN INDICATION
     Dosage: POSSIBLY TAKEN 7 TABLETS
     Route: 048

REACTIONS (11)
  - Muscle twitching [Recovering/Resolving]
  - Tachycardia [Recovering/Resolving]
  - Failure of child resistant mechanism for pharmaceutical product [None]
  - Hypotension [Recovering/Resolving]
  - Somnolence [Recovering/Resolving]
  - Accidental exposure to product by child [Recovering/Resolving]
  - Metabolic acidosis [Recovering/Resolving]
  - Electrocardiogram QRS complex prolonged [Recovering/Resolving]
  - Toxicity to various agents [None]
  - Loss of consciousness [Recovering/Resolving]
  - Eye movement disorder [Recovering/Resolving]

NARRATIVE: CASE EVENT DATE: 201403
